FAERS Safety Report 10217279 (Version 1)
Quarter: 2014Q2

REPORT INFORMATION
  Report Type: Spontaneous
  Country: US (occurrence: US)
  Receive Date: 20140604
  Receipt Date: 20140604
  Transmission Date: 20141212
  Serious: No
  Sender: FDA-Public Use
  Company Number: US-PFIZER INC-2014150656

PATIENT
  Sex: Female

DRUGS (1)
  1. ZOLOFT [Suspect]
     Dosage: HAD ONLY TAKEN ONE DOSE OF SERTALINE

REACTIONS (5)
  - Anger [Unknown]
  - Irritability [Unknown]
  - Diarrhoea [Unknown]
  - Dry mouth [Unknown]
  - Vomiting [Unknown]
